FAERS Safety Report 17723496 (Version 3)
Quarter: 2020Q4

REPORT INFORMATION
  Report Type: Spontaneous
  Country: NL (occurrence: NL)
  Receive Date: 20200429
  Receipt Date: 20201009
  Transmission Date: 20210113
  Serious: Yes (Other)
  Sender: FDA-Public Use
  Company Number: NL-JNJFOC-20191116362

PATIENT
  Sex: Male

DRUGS (3)
  1. TREMFYA [Suspect]
     Active Substance: GUSELKUMAB
     Indication: PSORIASIS
     Dosage: STARTED IN APRIL/MAY 2019.
     Route: 065
     Dates: start: 2019
  2. DERMOVATE [Suspect]
     Active Substance: CLOBETASOL
     Indication: PRODUCT USED FOR UNKNOWN INDICATION
     Route: 065
  3. TREMFYA [Suspect]
     Active Substance: GUSELKUMAB

REACTIONS (4)
  - Skin cancer [Unknown]
  - Skin fragility [Recovered/Resolved]
  - Skin haemorrhage [Recovered/Resolved]
  - Hyperkeratosis [Recovered/Resolved]

NARRATIVE: CASE EVENT DATE: 201907
